FAERS Safety Report 7762032-5 (Version None)
Quarter: 2011Q3

REPORT INFORMATION
  Report Type: 
  Country: None (occurrence: None)
  Receive Date: 20110920
  Receipt Date: 20110906
  Transmission Date: 20111222
  Serious: No
  Sender: FDA-Public Use
  Company Number: US-B.I. PHARMACEUTICALS,INC./RIDGEFIELD-2011-BP-02247BP

PATIENT
  Sex: Female

DRUGS (6)
  1. SOTALOL HCL [Concomitant]
     Indication: ATRIAL FIBRILLATION
     Dosage: 80 MG
     Route: 048
  2. SYNTHROID [Concomitant]
     Indication: HYPOTHYROIDISM
     Dosage: 100 MG
     Route: 048
  3. PRADAXA [Suspect]
     Indication: ATRIAL FIBRILLATION
     Dosage: 300 MG
     Route: 048
     Dates: start: 20101101
  4. HYDROCHLOROTHIAZIDE [Concomitant]
     Route: 048
  5. CRESTOR [Concomitant]
     Indication: BLOOD CHOLESTEROL INCREASED
     Dosage: 5 MG
     Route: 048
  6. PRILOSEC OTC [Concomitant]
     Indication: PROPHYLAXIS
     Dosage: 40 MG
     Route: 048

REACTIONS (13)
  - WOUND HAEMORRHAGE [None]
  - LUNG INFECTION [None]
  - ABDOMINAL DISCOMFORT [None]
  - LACERATION [None]
  - OEDEMA PERIPHERAL [None]
  - GASTROINTESTINAL PAIN [None]
  - BLOOD URINE PRESENT [None]
  - URTICARIA [None]
  - ARTHRALGIA [None]
  - DYSPEPSIA [None]
  - URINARY TRACT INFECTION [None]
  - OESOPHAGEAL SPASM [None]
  - CYSTITIS [None]
